FAERS Safety Report 16864080 (Version 1)
Quarter: 2019Q3

REPORT INFORMATION
  Report Type: Report from Study
  Country: US (occurrence: US)
  Receive Date: 20190927
  Receipt Date: 20190927
  Transmission Date: 20191005
  Serious: No
  Sender: FDA-Public Use
  Company Number: PHEH2019US039763

PATIENT
  Age: 55 Year

DRUGS (1)
  1. COSENTYX [Suspect]
     Active Substance: SECUKINUMAB
     Indication: PSORIASIS
     Dosage: 300 MG, UNK (300MG Q WEEKLY X 5 WEEKS THEN 300MG Q 4 WEEKS)
     Route: 058
     Dates: start: 20190920

REACTIONS (3)
  - Nausea [Unknown]
  - Dizziness [Unknown]
  - Respiratory symptom [Unknown]

NARRATIVE: CASE EVENT DATE: 20190923
